FAERS Safety Report 16600337 (Version 1)
Quarter: 2019Q3

REPORT INFORMATION
  Report Type: Spontaneous
  Country: FR (occurrence: FR)
  Receive Date: 20190720
  Receipt Date: 20190720
  Transmission Date: 20191004
  Serious: Yes (Disabling)
  Sender: FDA-Public Use
  Company Number: FR-TEVA-2019-FR-1079311

PATIENT
  Age: 74 Year
  Sex: Male
  Weight: 76 kg

DRUGS (18)
  1. NEBIVOLOL. [Concomitant]
     Active Substance: NEBIVOLOL
  2. MONTELUKAST SODIQUE [Concomitant]
     Active Substance: MONTELUKAST SODIUM
  3. FOSINOPRIL [Suspect]
     Active Substance: FOSINOPRIL
     Indication: HYPERTENSION
     Dosage: 20 MILLIGRAM DAILY;
     Route: 048
     Dates: end: 201712
  4. CORTANCYL 1 MG, COMPRIME [Suspect]
     Active Substance: PREDNISONE
     Indication: RHEUMATOID ARTHRITIS
     Route: 048
     Dates: end: 201712
  5. TEMESTA 2,5 MG, COMPRIME SECABLE [Suspect]
     Active Substance: LORAZEPAM
     Indication: DEPRESSION
     Route: 048
     Dates: end: 201712
  6. PRIVIGEN [Concomitant]
     Active Substance: HUMAN IMMUNOGLOBULIN G
  7. RILMENIDINE [Suspect]
     Active Substance: RILMENIDINE
     Indication: HYPERTENSION
     Dosage: 1 MILLIGRAM DAILY;
     Route: 048
     Dates: end: 201712
  8. ELIQUIS [Suspect]
     Active Substance: APIXABAN
     Indication: ATRIAL FIBRILLATION
     Route: 048
     Dates: start: 201704, end: 201712
  9. BACTRIM [Concomitant]
     Active Substance: SULFAMETHOXAZOLE\TRIMETHOPRIM
  10. CRESTOR [Suspect]
     Active Substance: ROSUVASTATIN CALCIUM
     Indication: DYSLIPIDAEMIA
     Route: 048
     Dates: end: 201712
  11. IMBRUVICA [Suspect]
     Active Substance: IBRUTINIB
     Indication: CHRONIC LYMPHOCYTIC LEUKAEMIA
     Route: 048
     Dates: start: 20170111, end: 20171212
  12. PANTOPRAZOLE [Concomitant]
     Active Substance: PANTOPRAZOLE
  13. SYMBICORT [Suspect]
     Active Substance: BUDESONIDE\FORMOTEROL FUMARATE DIHYDRATE
     Indication: CHRONIC OBSTRUCTIVE PULMONARY DISEASE
     Route: 055
     Dates: end: 201712
  14. EUPRESSYL 60 MG, GELULE [Suspect]
     Active Substance: URAPIDIL
     Indication: HYPERTENSION
     Route: 048
     Dates: end: 201712
  15. SPECIAFOLDINE 5 MG, COMPRIME [Suspect]
     Active Substance: FOLIC ACID
     Indication: PRODUCT USED FOR UNKNOWN INDICATION
     Route: 048
     Dates: end: 201712
  16. LERCANIDIPINE (CHLORHYDRATE DE) [Concomitant]
     Active Substance: LERCANIDIPINE HYDROCHLORIDE
  17. SALAZOPYRINE [Suspect]
     Active Substance: SULFASALAZINE
     Indication: RHEUMATOID ARTHRITIS
     Route: 048
     Dates: end: 20171228
  18. ZELITREX [Concomitant]
     Active Substance: VALACYCLOVIR HYDROCHLORIDE

REACTIONS (3)
  - Bronchopulmonary aspergillosis [Recovered/Resolved]
  - Pneumonia klebsiella [Recovered/Resolved]
  - Cerebral aspergillosis [Recovered/Resolved with Sequelae]

NARRATIVE: CASE EVENT DATE: 201712
